FAERS Safety Report 17509062 (Version 1)
Quarter: 2020Q1

REPORT INFORMATION
  Report Type: Spontaneous
  Country: US (occurrence: US)
  Receive Date: 20200306
  Receipt Date: 20200306
  Transmission Date: 20200409
  Serious: No
  Sender: FDA-Public Use
  Company Number: US-JNJFOC-20200243049

PATIENT
  Sex: Male
  Weight: 81.72 kg

DRUGS (4)
  1. HALDOL DECANOATE [Suspect]
     Active Substance: HALOPERIDOL DECANOATE
     Dosage: AT LARGE DOSAGES, OVER 300 MG AT A TIME
     Route: 030
  2. HALDOL DECANOATE [Suspect]
     Active Substance: HALOPERIDOL DECANOATE
     Dosage: 110 MG IN ONE ARM AND 150 MG IN THE OTHER ARM
     Route: 030
  3. ARTANE [Concomitant]
     Active Substance: TRIHEXYPHENIDYL HYDROCHLORIDE
     Route: 065
  4. HALDOL DECANOATE [Suspect]
     Active Substance: HALOPERIDOL DECANOATE
     Indication: SCHIZOPHRENIA
     Dosage: 260 MG AMPULE (110MG IN ONE ARM AND 150MG IN THE OTHER ARM)
     Route: 030

REACTIONS (7)
  - Wrong technique in product usage process [Unknown]
  - Off label use [Unknown]
  - Back disorder [Unknown]
  - Amnesia [Not Recovered/Not Resolved]
  - Abdominal pain upper [Not Recovered/Not Resolved]
  - Product use issue [Unknown]
  - Arthropathy [Unknown]
